FAERS Safety Report 10049036 (Version 1)
Quarter: 2014Q1

REPORT INFORMATION
  Report Type: Spontaneous
  Country: US (occurrence: US)
  Receive Date: 20140331
  Receipt Date: 20140331
  Transmission Date: 20141002
  Serious: Yes (Hospitalization, Other)
  Sender: FDA-Public Use
  Company Number: US-ASTRAZENECA-2014SE20633

PATIENT
  Age: 64 Year
  Sex: Female
  Weight: 59 kg

DRUGS (12)
  1. NEXIUM [Suspect]
     Indication: GASTROOESOPHAGEAL REFLUX DISEASE
     Route: 048
     Dates: start: 2001, end: 2012
  2. NEXIUM [Suspect]
     Indication: GASTROOESOPHAGEAL REFLUX DISEASE
     Route: 048
     Dates: start: 2001, end: 2012
  3. ADVAIR [Concomitant]
     Indication: ASTHMA
     Dosage: 250/50 BID
     Route: 055
     Dates: start: 2001
  4. FLUTICASONE [Concomitant]
     Indication: MULTIPLE ALLERGIES
     Route: 045
     Dates: start: 2001
  5. LEVOTHYROXINE [Concomitant]
     Indication: THYROID DISORDER
     Dosage: 0.05MG 1/2 TAB DAILY
     Route: 048
     Dates: start: 1985
  6. AMLODIPINE BENAZ [Concomitant]
     Indication: HYPERTENSION
     Dosage: 10/40MG DAILY
     Route: 048
     Dates: start: 2001
  7. SIMVASTATIN [Concomitant]
     Indication: BLOOD CHOLESTEROL ABNORMAL
     Route: 048
     Dates: start: 2005
  8. FORTAMET [Concomitant]
     Indication: DIABETES MELLITUS
     Route: 048
     Dates: start: 2005
  9. LEVOCETIRIZINE [Concomitant]
     Indication: MULTIPLE ALLERGIES
     Route: 048
     Dates: start: 2005
  10. ALBUTEROL [Concomitant]
     Indication: HYPERSENSITIVITY
     Route: 048
     Dates: start: 201311
  11. PROCTOZONE [Concomitant]
     Indication: HAEMORRHOIDS
     Route: 054
     Dates: start: 2013
  12. ESTRACE [Concomitant]
     Indication: VAGINAL DISORDER
     Route: 061
     Dates: start: 201401

REACTIONS (3)
  - Ovarian cancer [Unknown]
  - Vaginal prolapse [Unknown]
  - Intestinal prolapse [Unknown]
